FAERS Safety Report 5833750-0 (Version None)
Quarter: 2008Q3

REPORT INFORMATION
  Report Type: 
  Country: None (occurrence: None)
  Receive Date: 20080804
  Receipt Date: 20080804
  Transmission Date: 20090109
  Serious: No
  Sender: FDA-Public Use
  Company Number: None

PATIENT
  Age: 62 Year
  Sex: Male
  Weight: 92 kg

DRUGS (1)
  1. BOTULINUM TOXIN TYPE A [Suspect]
     Dosage: 50 UNITS ONCE OTHER
     Route: 050
     Dates: start: 20080403, end: 20080403

REACTIONS (3)
  - EYE IRRITATION [None]
  - EYELID PTOSIS [None]
  - LACRIMATION INCREASED [None]
